FAERS Safety Report 5689739-8 (Version None)
Quarter: 2008Q1

REPORT INFORMATION
  Report Type: 
  Country: None (occurrence: None)
  Receive Date: 20080328
  Receipt Date: 20080312
  Transmission Date: 20080703
  Serious: Yes (Hospitalization)
  Sender: FDA-Public Use
  Company Number: TRP_0570_2005

PATIENT
  Age: 16 Year
  Sex: Male

DRUGS (2)
  1. AMPHOCIL/AMPHOTERICIN B CHOLESTERYL SULFATE COMPLEX FOR INJECTION [Suspect]
     Indication: GRANULOCYTOPENIA
     Dosage: 1 MG/KGFOR 1 HOUR 30 MINS; INTRAVENOUS (NOT OTHERWISE SPECIFIED))
     Route: 042
     Dates: start: 19981201, end: 19981201
  2. AMPHOCIL/AMPHOTERICIN B CHOLESTERYL SULFATE COMPLEX FOR INJECTION [Suspect]
     Indication: PYREXIA
     Dosage: 1 MG/KGFOR 1 HOUR 30 MINS; INTRAVENOUS (NOT OTHERWISE SPECIFIED))
     Route: 042
     Dates: start: 19981201, end: 19981201

REACTIONS (15)
  - ANURIA [None]
  - BLOOD PRESSURE IMMEASURABLE [None]
  - CYANOSIS [None]
  - DYSPNOEA [None]
  - GRAFT VERSUS HOST DISEASE [None]
  - HYPERHIDROSIS [None]
  - HYPERTHERMIA MALIGNANT [None]
  - HYPERTONIA [None]
  - LOSS OF CONSCIOUSNESS [None]
  - MYOGLOBINURIA [None]
  - PULSE ABSENT [None]
  - RESPIRATORY PARALYSIS [None]
  - RHABDOMYOLYSIS [None]
  - SHOCK [None]
  - TRISMUS [None]
